FAERS Safety Report 7864677-0 (Version None)
Quarter: 2011Q4

REPORT INFORMATION
  Report Type: 
  Country: None (occurrence: None)
  Receive Date: 20111028
  Receipt Date: 20111025
  Transmission Date: 20120403
  Serious: Yes (Life-Threatening)
  Sender: FDA-Public Use
  Company Number: JP-PFIZER INC-2011194287

PATIENT
  Age: 46 Year
  Sex: Male
  Weight: 72.55 kg

DRUGS (3)
  1. SUTENT [Suspect]
     Indication: RENAL CANCER
     Dosage: 50 MG, 1X/DAY
     Route: 048
     Dates: start: 20110726, end: 20110810
  2. NORVASC [Suspect]
     Indication: HYPERTENSION
     Dosage: 2.5 MG, 1X/DAY
     Route: 048
     Dates: start: 20110809
  3. MOBIC [Suspect]
     Indication: PAIN
     Dosage: 10 MG, 1X/DAY
     Route: 048
     Dates: start: 20110623

REACTIONS (1)
  - INTERSTITIAL LUNG DISEASE [None]
